FAERS Safety Report 7423635-0 (Version None)
Quarter: 2011Q2

REPORT INFORMATION
  Report Type: 
  Country: None (occurrence: None)
  Receive Date: 20110413
  Receipt Date: 20110413
  Transmission Date: 20111010
  Serious: Yes (Hospitalization)
  Sender: FDA-Public Use
  Company Number: None

PATIENT
  Age: 49 Year
  Sex: Male
  Weight: 102.6 kg

DRUGS (3)
  1. VASOTEC [Suspect]
     Indication: HYPERTENSION
     Dosage: 10MG BID PO CHRONIC
     Route: 048
  2. CENTRUM [Concomitant]
  3. CIPRO [Concomitant]

REACTIONS (4)
  - GRANULOMA ANNULARE [None]
  - CELLULITIS STAPHYLOCOCCAL [None]
  - RENAL FAILURE ACUTE [None]
  - ANGIOEDEMA [None]
